FAERS Safety Report 12145966 (Version 1)
Quarter: 2016Q1

REPORT INFORMATION
  Report Type: Spontaneous
  Country: CA (occurrence: CA)
  Receive Date: 20160304
  Receipt Date: 20160304
  Transmission Date: 20160526
  Serious: Yes (Hospitalization)
  Sender: FDA-Public Use
  Company Number: CA-TEVA-639328ACC

PATIENT
  Age: 50 Year
  Sex: Female
  Weight: 131 kg

DRUGS (27)
  1. OMEPRAZOLE. [Concomitant]
     Active Substance: OMEPRAZOLE
  2. METONIA [Interacting]
     Active Substance: METOCLOPRAMIDE
     Indication: PRODUCT USED FOR UNKNOWN INDICATION
     Dosage: 40 MILLIGRAM DAILY;
     Route: 065
  3. METOPROLOL. [Concomitant]
     Active Substance: METOPROLOL
  4. SENNOSIDES. [Concomitant]
     Active Substance: SENNOSIDES
  5. VENLAFAXINE XR [Concomitant]
     Active Substance: VENLAFAXINE HYDROCHLORIDE
  6. BISACODYL. [Concomitant]
     Active Substance: BISACODYL
  7. FUCIDIN [Concomitant]
     Active Substance: FUSIDIC ACID
  8. FUROSEMIDE. [Concomitant]
     Active Substance: FUROSEMIDE
  9. HYDROCORTISONE. [Concomitant]
     Active Substance: HYDROCORTISONE
  10. SPIRONOLACTONE. [Concomitant]
     Active Substance: SPIRONOLACTONE
  11. TEVA-VENLAFAXINE XR [Suspect]
     Active Substance: VENLAFAXINE HYDROCHLORIDE
     Indication: PRODUCT USED FOR UNKNOWN INDICATION
     Dosage: 75 MILLIGRAM DAILY;
     Route: 065
  12. ACETAMINOPHEN AND CODEINE [Concomitant]
     Active Substance: ACETAMINOPHEN\CODEINE PHOSPHATE
  13. BISACODYL. [Concomitant]
     Active Substance: BISACODYL
  14. CEFTRIAXONE FOR INJECTION USP [Concomitant]
     Active Substance: CEFTRIAXONE
  15. MAGNESIUM [Concomitant]
     Active Substance: MAGNESIUM
  16. LEVODOPA-CARBIDOPA 100-25 [Concomitant]
  17. MAGNOLAX [Concomitant]
  18. ACETAMINOPHEN. [Concomitant]
     Active Substance: ACETAMINOPHEN
  19. DIMENHYDRINATE. [Concomitant]
     Active Substance: DIMENHYDRINATE
  20. FLUTICASONE [Concomitant]
     Active Substance: FLUTICASONE\FLUTICASONE PROPIONATE
  21. NABILONE [Concomitant]
     Active Substance: NABILONE
  22. FLEET ENEMA MINERAL OIL [Concomitant]
  23. GLYCERIN SUPPOSITORIES [Concomitant]
  24. LOPERAMIDE [Concomitant]
     Active Substance: LOPERAMIDE
  25. METOCLOPRAMIDE. [Concomitant]
     Active Substance: METOCLOPRAMIDE
  26. CETYLPYRIDINIUM [Concomitant]
     Active Substance: CETYLPYRIDINIUM
  27. FLOVENT [Concomitant]
     Active Substance: FLUTICASONE PROPIONATE

REACTIONS (6)
  - Dizziness [Recovered/Resolved]
  - Depression [Recovered/Resolved]
  - Drug interaction [Recovered/Resolved]
  - Asthenia [Recovered/Resolved]
  - Incontinence [Recovered/Resolved]
  - Gait disturbance [Recovered/Resolved]
